FAERS Safety Report 17467502 (Version 10)
Quarter: 2024Q3

REPORT INFORMATION
  Report Type: Spontaneous
  Country: US (occurrence: US)
  Receive Date: 20200227
  Receipt Date: 20240828
  Transmission Date: 20241017
  Serious: No
  Sender: PFIZER
  Company Number: US-PFIZER INC-2020086266

PATIENT
  Age: 68 Year
  Sex: Female
  Weight: 71 kg

DRUGS (11)
  1. XELJANZ XR [Suspect]
     Active Substance: TOFACITINIB CITRATE
     Indication: Rheumatoid arthritis
     Dosage: 11 MG, DAILY
     Route: 048
  2. ASCORBIC ACID [Concomitant]
     Active Substance: ASCORBIC ACID
  3. ATORVASTATIN [Concomitant]
     Active Substance: ATORVASTATIN
  4. BUSPIRONE [Concomitant]
     Active Substance: BUSPIRONE HYDROCHLORIDE
  5. CALCIUM [Concomitant]
     Active Substance: CALCIUM
  6. CEFUROXIME [Concomitant]
     Active Substance: CEFUROXIME
  7. CHOLECALCIFEROL [Concomitant]
     Active Substance: CHOLECALCIFEROL
  8. FLUOXETINE [Concomitant]
     Active Substance: FLUOXETINE HYDROCHLORIDE
  9. GABAPENTIN [Concomitant]
     Active Substance: GABAPENTIN
  10. TRAZODONE [Concomitant]
     Active Substance: TRAZODONE HYDROCHLORIDE
  11. VALACYCLOVIR [Concomitant]
     Active Substance: VALACYCLOVIR HYDROCHLORIDE

REACTIONS (12)
  - Drug hypersensitivity [Unknown]
  - Herpes zoster [Unknown]
  - Amnesia [Unknown]
  - Thinking abnormal [Unknown]
  - Ear disorder [Unknown]
  - Sinus disorder [Unknown]
  - Allergy to animal [Unknown]
  - Anxiety [Unknown]
  - Sensitivity to weather change [Unknown]
  - Musculoskeletal stiffness [Unknown]
  - Pain in extremity [Unknown]
  - Feeling hot [Unknown]
